FAERS Safety Report 6109405-4 (Version None)
Quarter: 2009Q1

REPORT INFORMATION
  Report Type: 
  Country: None (occurrence: None)
  Receive Date: 20090306
  Receipt Date: 20090306
  Transmission Date: 20090719
  Serious: Yes (Hospitalization)
  Sender: FDA-Public Use
  Company Number: None

PATIENT
  Age: 24 Year
  Sex: Female
  Weight: 53.0709 kg

DRUGS (1)
  1. NUVARING [Suspect]
     Indication: CONTRACEPTION
     Dosage: ONE VAGINAL RING ONCE A MONTH VAG
     Route: 067
     Dates: start: 20080807, end: 20081101

REACTIONS (4)
  - ILL-DEFINED DISORDER [None]
  - NECK PAIN [None]
  - PYREXIA [None]
  - RASH [None]
